FAERS Safety Report 5390589-0 (Version None)
Quarter: 2007Q3

REPORT INFORMATION
  Report Type: 
  Country: None (occurrence: None)
  Receive Date: 20070718
  Receipt Date: 20070706
  Transmission Date: 20080115
  Serious: Yes (Other)
  Sender: FDA-Public Use
  Company Number: US-PFIZER INC-2007057468

PATIENT
  Sex: Female

DRUGS (9)
  1. LIPITOR [Suspect]
     Indication: BLOOD CHOLESTEROL INCREASED
     Dates: start: 20070413, end: 20070619
  2. CHANTIX [Suspect]
     Indication: SMOKING CESSATION THERAPY
  3. BENICAR [Concomitant]
  4. TARKA [Concomitant]
  5. EFFEXOR [Concomitant]
  6. LEVOTHYROXINE SODIUM [Concomitant]
  7. XANAX [Concomitant]
  8. ADVAIR DISKUS 100/50 [Concomitant]
     Route: 055
  9. PROVENTIL INHALER [Concomitant]
     Route: 055

REACTIONS (1)
  - MUSCLE SPASMS [None]
